FAERS Safety Report 24003611 (Version 2)
Quarter: 2024Q3

REPORT INFORMATION
  Report Type: Spontaneous
  Country: US (occurrence: US)
  Receive Date: 20240624
  Receipt Date: 20240722
  Transmission Date: 20241016
  Serious: Yes (Other)
  Sender: AUROBINDO
  Company Number: US-MLMSERVICE-20240418-PI028894-00218-1

PATIENT
  Age: 78 Year
  Sex: Male
  Weight: 65 kg

DRUGS (6)
  1. METHOTREXATE [Suspect]
     Active Substance: METHOTREXATE
     Indication: Central nervous system lymphoma
     Dosage: HIGH DOSE; (6.1 G) IN SODIUM CHLORIDE 0.9% (NS) 500 ML IVPB, 1 OF 6 CYCLES
     Route: 065
     Dates: start: 20230217, end: 20230710
  2. RUXIENCE [Suspect]
     Active Substance: RITUXIMAB-PVVR
     Indication: Central nervous system lymphoma
     Dosage: WITH 700 MG IN SODIUM CHLORIDE 0.9% (NS), 700 ML IVPB (STANDARD INFUSION) 1 OF 6 CYCLES
     Route: 042
     Dates: start: 20230217, end: 20230710
  3. RUXIENCE [Suspect]
     Active Substance: RITUXIMAB-PVVR
     Dosage: UNK UNK, CYCLICAL (TWO CYCLES)
     Route: 065
  4. DEXAMETHASONE [Concomitant]
     Active Substance: DEXAMETHASONE
     Indication: Brain oedema
     Dosage: UNK
     Route: 065
  5. SODIUM CHLORIDE [Concomitant]
     Active Substance: SODIUM CHLORIDE
     Indication: Product used for unknown indication
     Dosage: 700 MILLILITER (700 ML IVPB (STANDARD INFUSION), INTRAVENOUS, WITH RITUXIMAB 1 OF 6 CYCLES)
     Route: 042
     Dates: start: 2023
  6. SODIUM CHLORIDE [Concomitant]
     Active Substance: SODIUM CHLORIDE
     Dosage: 500 MILLILITER (500 ML IVPB, WITH METHOTREXATE 1 OF 6 CYCLES)
     Route: 042
     Dates: start: 2023

REACTIONS (4)
  - Cognitive disorder [Recovered/Resolved]
  - Leukoencephalopathy [Recovered/Resolved]
  - Drug ineffective [Unknown]
  - Therapy partial responder [Unknown]

NARRATIVE: CASE EVENT DATE: 20230627
